FAERS Safety Report 8078889-7 (Version None)
Quarter: 2012Q1

REPORT INFORMATION
  Report Type: 
  Country: None (occurrence: None)
  Receive Date: 20120128
  Receipt Date: 20110419
  Transmission Date: 20120608
  Serious: No
  Sender: FDA-Public Use
  Company Number: US-ABBOTT-11P-163-0721549-00

PATIENT
  Sex: Female
  Weight: 102.15 kg

DRUGS (7)
  1. METHOTREXATE [Concomitant]
     Indication: PRODUCT USED FOR UNKNOWN INDICATION
     Dosage: 3 TABLETS EVERY THURSDAY, 7.5 MG/WEEK
     Route: 048
  2. SINGULAIR [Concomitant]
     Indication: ALLERGIC SINUSITIS
  3. HUMIRA [Suspect]
     Indication: RHEUMATOID ARTHRITIS
     Route: 058
     Dates: start: 20081203
  4. BENICAR [Concomitant]
     Indication: HYPERTENSION
  5. CELEBREX [Concomitant]
     Indication: PRODUCT USED FOR UNKNOWN INDICATION
     Route: 058
  6. METOPROLOL TARTRATE [Concomitant]
     Indication: PRODUCT USED FOR UNKNOWN INDICATION
     Route: 048
  7. FOLIC ACID [Concomitant]
     Indication: RHEUMATOID ARTHRITIS
     Route: 048

REACTIONS (5)
  - HAEMORRHOIDAL HAEMORRHAGE [None]
  - DIVERTICULITIS [None]
  - RECTAL HAEMORRHAGE [None]
  - BREAST CALCIFICATIONS [None]
  - BONE LOSS [None]
